FAERS Safety Report 24815356 (Version 1)
Quarter: 2025Q1

REPORT INFORMATION
  Report Type: Spontaneous
  Country: US (occurrence: None)
  Receive Date: 20250107
  Receipt Date: 20250107
  Transmission Date: 20250409
  Serious: No
  Sender: FDA-CTU
  Company Number: None

PATIENT

DRUGS (1)
  1. SKYRIZI [Suspect]
     Active Substance: RISANKIZUMAB-RZAA

REACTIONS (13)
  - Fatigue [None]
  - Pruritus [None]
  - Dysstasia [None]
  - Back disorder [None]
  - Erythema [None]
  - Skin exfoliation [None]
  - Skin burning sensation [None]
  - Pain [None]
  - Skin fissures [None]
  - Haemorrhage [None]
  - Pain [None]
  - Depression [None]
  - Anaemia [None]
